FAERS Safety Report 6380378-2 (Version None)
Quarter: 2009Q4

REPORT INFORMATION
  Report Type: 
  Country: None (occurrence: None)
  Receive Date: 20090921
  Receipt Date: 20090909
  Transmission Date: 20100525
  Serious: Yes (Death)
  Sender: FDA-Public Use
  Company Number: 2009EU003576

PATIENT
  Age: 56 Year
  Sex: Male

DRUGS (3)
  1. PROGRAF [Suspect]
     Indication: LIVER TRANSPLANT
     Dosage: D
     Dates: start: 20071201
  2. CELLCEPT [Suspect]
     Indication: LIVER TRANSPLANT
     Dosage: D
     Dates: start: 20071201
  3. CORTICOSTEROID NOS(CORTICOSTEROID NOS)` [Suspect]
     Indication: LIVER TRANSPLANT
     Dosage: D
     Dates: start: 20071201

REACTIONS (3)
  - HEPATIC ARTERY STENOSIS [None]
  - HEPATIC NEOPLASM MALIGNANT RECURRENT [None]
  - PERITONEAL HAEMORRHAGE [None]
